FAERS Safety Report 25106698 (Version 2)
Quarter: 2025Q3

REPORT INFORMATION
  Report Type: Report from Study
  Country: US (occurrence: US)
  Receive Date: 20250321
  Receipt Date: 20250803
  Transmission Date: 20251021
  Serious: Yes (Hospitalization, Other)
  Sender: ALEXION PHARMACEUTICALS
  Company Number: US-AstraZeneca-CH-00828174A

PATIENT
  Sex: Female

DRUGS (1)
  1. CAPIVASERTIB [Suspect]
     Active Substance: CAPIVASERTIB
     Route: 065

REACTIONS (10)
  - Pyrexia [Unknown]
  - Loss of consciousness [Unknown]
  - Hypotension [Unknown]
  - Headache [Unknown]
  - Toxicity to various agents [Unknown]
  - Feeling abnormal [Unknown]
  - Rash [Unknown]
  - Muscular weakness [Unknown]
  - Skin exfoliation [Unknown]
  - Fall [Unknown]
